FAERS Safety Report 8980836 (Version 1)
Quarter: 2012Q4

REPORT INFORMATION
  Report Type: 
  Country: US (occurrence: US)
  Receive Date: 20121221
  Receipt Date: 20121221
  Transmission Date: 20130627
  Serious: No
  Sender: FDA-Public Use
  Company Number: US-PFIZER INC-2012324920

PATIENT
  Age: 43 Year
  Sex: Female
  Weight: 157 kg

DRUGS (7)
  1. LYRICA [Suspect]
     Indication: PAIN BACK
     Dosage: 75 mg, 2x/day
     Dates: start: 2010
  2. LYRICA [Suspect]
     Indication: PAIN LEGS
  3. METFORMIN [Concomitant]
     Indication: DIABETES
     Dosage: 1000 mg, 2x/day
  4. LISINOPRIL [Concomitant]
     Indication: BLOOD PRESSURE HIGH
     Dosage: 20 mg, daily
  5. ZOCOR [Concomitant]
     Indication: HIGH CHOLESTEROL
     Dosage: 40 mg, daily
  6. ALBUTEROL [Concomitant]
     Indication: ASTHMA
     Dosage: UNK
  7. SYMBICORT [Concomitant]
     Indication: ASTHMA
     Dosage: UNK

REACTIONS (1)
  - Fall [Unknown]
